FAERS Safety Report 22223667 (Version 4)
Quarter: 2023Q2

REPORT INFORMATION
  Report Type: Report from Study
  Country: US (occurrence: US)
  Receive Date: 20230418
  Receipt Date: 20230623
  Transmission Date: 20230722
  Serious: Yes (Hospitalization)
  Sender: FDA-Public Use
  Company Number: US-GILEAD-2023-0622832

PATIENT
  Age: 73 Year
  Sex: Female
  Weight: 84 kg

DRUGS (77)
  1. BREXUCABTAGENE AUTOLEUCEL [Suspect]
     Active Substance: BREXUCABTAGENE AUTOLEUCEL
     Indication: Mantle cell lymphoma
     Dosage: 68
     Route: 065
     Dates: start: 20230103, end: 20230103
  2. CYCLOPHOSPHAMIDE [Suspect]
     Active Substance: CYCLOPHOSPHAMIDE
     Indication: Bone marrow conditioning regimen
     Dosage: 815
     Route: 065
     Dates: start: 20221229, end: 20221229
  3. CYCLOPHOSPHAMIDE [Suspect]
     Active Substance: CYCLOPHOSPHAMIDE
     Dosage: 815
     Route: 065
     Dates: start: 20221230, end: 20221230
  4. CYCLOPHOSPHAMIDE [Suspect]
     Active Substance: CYCLOPHOSPHAMIDE
     Dosage: 815
     Route: 065
     Dates: start: 20221231, end: 20221231
  5. FLUDARABINE [Suspect]
     Active Substance: FLUDARABINE PHOSPHATE
     Indication: Bone marrow conditioning regimen
     Dosage: 49
     Route: 065
     Dates: start: 20221229, end: 20221229
  6. FLUDARABINE [Suspect]
     Active Substance: FLUDARABINE PHOSPHATE
     Dosage: 49
     Route: 065
     Dates: start: 20221230, end: 20221230
  7. FLUDARABINE [Suspect]
     Active Substance: FLUDARABINE PHOSPHATE
     Dosage: 49
     Route: 065
     Dates: start: 20221231, end: 20221231
  8. ALBUTEROL [Concomitant]
     Active Substance: ALBUTEROL
     Dosage: 1,OTHER,OTHER
     Route: 055
     Dates: start: 20230125
  9. COMBIVENT [Concomitant]
     Active Substance: ALBUTEROL SULFATE\IPRATROPIUM BROMIDE
     Dosage: 2,OTHER,DAILY
     Route: 055
  10. COMBIVENT [Concomitant]
     Active Substance: ALBUTEROL SULFATE\IPRATROPIUM BROMIDE
     Dosage: 2,OTHER,DAILY
     Route: 048
     Dates: start: 20230323, end: 20230402
  11. LEVOTHYROXINE [Concomitant]
     Active Substance: LEVOTHYROXINE
     Dosage: 100,UG,DAILY
     Route: 048
  12. LITHIUM CARBONATE [Concomitant]
     Active Substance: LITHIUM CARBONATE
     Dosage: 450,MG,DAILY
     Route: 048
  13. MONTELUKAST [Concomitant]
     Active Substance: MONTELUKAST SODIUM
     Dosage: 10,MG,DAILY
     Route: 048
  14. OMEPRAZOLE [Concomitant]
     Active Substance: OMEPRAZOLE
     Dosage: 20,MG,DAILY
     Route: 048
  15. SERTRALINE [Concomitant]
     Active Substance: SERTRALINE HYDROCHLORIDE
     Dosage: 75,MG,DAILY
     Route: 048
     Dates: start: 20230208
  16. SYMBICORT [Concomitant]
     Active Substance: BUDESONIDE\FORMOTEROL FUMARATE DIHYDRATE
     Dosage: 2,OTHER,DAILY
     Route: 055
  17. XANAX [Concomitant]
     Active Substance: ALPRAZOLAM
     Dosage: 0.5,MG,TWICE DAILY
     Route: 048
  18. ONDANSETRON [Concomitant]
     Active Substance: ONDANSETRON
     Dosage: 8,MG,OTHER
     Route: 048
     Dates: start: 20230125
  19. ACETAMINOPHEN [Concomitant]
     Active Substance: ACETAMINOPHEN
     Dosage: 650,MG,OTHER
     Route: 048
     Dates: start: 20230208
  20. ACETAMINOPHEN [Concomitant]
     Active Substance: ACETAMINOPHEN
     Dosage: 650,MG,ONCE
     Route: 048
     Dates: start: 20230316, end: 20230316
  21. ACETAMINOPHEN [Concomitant]
     Active Substance: ACETAMINOPHEN
     Dosage: 325,MG,ONCE
     Route: 048
     Dates: start: 20230318, end: 20230318
  22. ACETAMINOPHEN [Concomitant]
     Active Substance: ACETAMINOPHEN
     Dosage: 650,MG,ONCE
     Route: 048
     Dates: start: 20230323, end: 20230323
  23. PANTOPRAZOLE [Concomitant]
     Active Substance: PANTOPRAZOLE
     Dosage: 40,MG,DAILY
     Route: 048
     Dates: start: 20230208, end: 20230324
  24. KEPPRA [Concomitant]
     Active Substance: LEVETIRACETAM
     Dosage: 500,MG,OTHER
     Route: 048
     Dates: start: 20230215, end: 20230322
  25. LIDOCAINE [Concomitant]
     Active Substance: LIDOCAINE
     Dosage: 1,OTHER,DAILY
     Route: 061
     Dates: start: 20230216, end: 20230310
  26. THIAMINE [Concomitant]
     Active Substance: THIAMINE
     Dosage: 100,MG,DAILY
     Route: 048
     Dates: start: 20230221, end: 20230324
  27. DOCUSATE [Concomitant]
     Active Substance: DOCUSATE
     Dosage: 200,MG,OTHER
     Route: 048
     Dates: start: 20230225, end: 20230319
  28. ANAKINRA [Concomitant]
     Active Substance: ANAKINRA
     Dosage: 100,MG,DAILY
     Route: 058
     Dates: start: 20230228, end: 20230304
  29. HALDOL [Concomitant]
     Active Substance: HALOPERIDOL
     Dosage: 2,MG,OTHER
     Route: 042
     Dates: start: 20230228, end: 20230309
  30. HALDOL [Concomitant]
     Active Substance: HALOPERIDOL
     Dosage: 2,MG,OTHER
     Route: 042
     Dates: start: 20230228, end: 20230314
  31. HALDOL [Concomitant]
     Active Substance: HALOPERIDOL
     Dosage: 2,MG,OTHER
     Route: 042
     Dates: start: 20230318, end: 20230320
  32. MIRALAX [Concomitant]
     Active Substance: POLYETHYLENE GLYCOL 3350
     Dosage: 17,G,DAILY
     Route: 048
     Dates: start: 20230228, end: 20230309
  33. HYPROMELLOSES [Concomitant]
     Active Substance: HYPROMELLOSES
     Dosage: 1,OTHER,OTHER
     Route: 031
     Dates: start: 20230313, end: 20230322
  34. OLANZAPINE [Concomitant]
     Active Substance: OLANZAPINE
     Dosage: 5,MG,OTHER
     Route: 048
     Dates: start: 20230314, end: 20230314
  35. DICLOFENAC [Concomitant]
     Active Substance: DICLOFENAC
     Dosage: 1,OTHER,FOUR TIMES DAILY
     Route: 061
     Dates: start: 20230320, end: 20230324
  36. DICLOFENAC [Concomitant]
     Active Substance: DICLOFENAC
     Dosage: 1,OTHER,OTHER
     Route: 061
     Dates: start: 20230324
  37. DECADRON [Concomitant]
     Active Substance: DEXAMETHASONE
     Dosage: 6,MG,TWICE DAILY
     Route: 042
     Dates: start: 20230301, end: 20230307
  38. DECADRON [Concomitant]
     Active Substance: DEXAMETHASONE
     Dosage: 4,MG,OTHER
     Route: 048
     Dates: start: 20230315, end: 20230320
  39. IPRATROPIUM [Concomitant]
     Active Substance: IPRATROPIUM
     Dosage: 0.5,MG,TWICE DAILY
     Route: 055
     Dates: start: 20230301, end: 20230316
  40. IPRATROPIUM [Concomitant]
     Active Substance: IPRATROPIUM
     Dosage: 0.5,MG,OTHER
     Route: 055
     Dates: start: 20230402
  41. POTASSIUM CHLORIDE [Concomitant]
     Active Substance: POTASSIUM CHLORIDE
     Dosage: 20,OTHER,TWICE DAILY
     Route: 048
     Dates: start: 20230301, end: 20230311
  42. POTASSIUM CHLORIDE [Concomitant]
     Active Substance: POTASSIUM CHLORIDE
     Dosage: 20,OTHER,ONCE
     Route: 042
     Dates: start: 20230310, end: 20230310
  43. POTASSIUM CHLORIDE [Concomitant]
     Active Substance: POTASSIUM CHLORIDE
     Dosage: 20,OTHER,TWICE DAILY
     Route: 048
     Dates: start: 20230311, end: 20230311
  44. POTASSIUM CHLORIDE [Concomitant]
     Active Substance: POTASSIUM CHLORIDE
     Dosage: 40,OTHER,ONCE
     Route: 048
     Dates: start: 20230312, end: 20230312
  45. POTASSIUM CHLORIDE [Concomitant]
     Active Substance: POTASSIUM CHLORIDE
     Dosage: 20,OTHER,OTHER
     Route: 048
     Dates: start: 20230318, end: 20230318
  46. POTASSIUM CHLORIDE [Concomitant]
     Active Substance: POTASSIUM CHLORIDE
     Dosage: 40,OTHER,ONCE
     Route: 048
     Dates: start: 20230319, end: 20230319
  47. POTASSIUM CHLORIDE [Concomitant]
     Active Substance: POTASSIUM CHLORIDE
     Dosage: 40,OTHER,ONCE
     Route: 048
     Dates: start: 20230403, end: 20230403
  48. POTASSIUM CHLORIDE [Concomitant]
     Active Substance: POTASSIUM CHLORIDE
     Dosage: 20,OTHER,ONCE
     Route: 042
     Dates: start: 20230408, end: 20230408
  49. ATORVASTATIN [Concomitant]
     Active Substance: ATORVASTATIN
     Dosage: 40,MG,OTHER
     Route: 048
     Dates: start: 20230302
  50. CEFTRIAXONE [Concomitant]
     Active Substance: CEFTRIAXONE
     Dosage: 1,G,DAILY
     Route: 042
     Dates: start: 20230302, end: 20230307
  51. TIOTROPIUM [Concomitant]
     Active Substance: TIOTROPIUM
     Dosage: 18,OTHER,DAILY
     Route: 055
     Dates: start: 20230306, end: 20230324
  52. DEXAMETHASONE [Concomitant]
     Active Substance: DEXAMETHASONE
     Dosage: 4,MG,DAILY
     Route: 042
     Dates: start: 20230307, end: 20230308
  53. DEXAMETHASONE [Concomitant]
     Active Substance: DEXAMETHASONE
     Dosage: 4,MG,DAILY
     Route: 048
     Dates: start: 20230309, end: 20230314
  54. MAGNESIUM SULFATE [Concomitant]
     Active Substance: MAGNESIUM SULFATE
     Dosage: 2,G,ONCE
     Route: 042
     Dates: start: 20230307, end: 20230307
  55. MAGNESIUM SULFATE [Concomitant]
     Active Substance: MAGNESIUM SULFATE
     Dosage: 2,G,ONCE
     Route: 042
     Dates: start: 20230318, end: 20230318
  56. MAGNESIUM SULFATE [Concomitant]
     Active Substance: MAGNESIUM SULFATE
     Dosage: 2,G,ONCE
     Route: 042
     Dates: start: 20230321, end: 20230321
  57. MAGNESIUM SULFATE [Concomitant]
     Active Substance: MAGNESIUM SULFATE
     Dosage: 2,G,ONCE
     Route: 042
     Dates: start: 20230403, end: 20230403
  58. ZOSYN [Concomitant]
     Active Substance: PIPERACILLIN SODIUM\TAZOBACTAM SODIUM
     Dosage: 3.375,G,OTHER
     Route: 042
     Dates: start: 20230307, end: 20230312
  59. POTASSIUM BICARBONATE [Concomitant]
     Active Substance: POTASSIUM BICARBONATE
     Dosage: 20,OTHER,OTHER
     Route: 048
     Dates: start: 20230310, end: 20230310
  60. POTASSIUM BICARBONATE [Concomitant]
     Active Substance: POTASSIUM BICARBONATE
     Dosage: 20,OTHER,DAILY
     Route: 048
     Dates: start: 20230321, end: 20230324
  61. AZTREONAM [Concomitant]
     Active Substance: AZTREONAM
     Dosage: 2,G,ONCE
     Dates: start: 20230317, end: 20230317
  62. DOXYCYCLINE [Concomitant]
     Active Substance: DOXYCYCLINE
     Dosage: 100,MG,TWICE DAILY
     Route: 048
     Dates: start: 20230317, end: 20230322
  63. DOXYCYCLINE [Concomitant]
     Active Substance: DOXYCYCLINE
     Dosage: 100,MG,OTHER
     Route: 042
     Dates: start: 20230405, end: 20230408
  64. FUROSEMIDE [Concomitant]
     Active Substance: FUROSEMIDE
     Dosage: 20,MG,ONCE
     Route: 042
     Dates: start: 20230317, end: 20230317
  65. FUROSEMIDE [Concomitant]
     Active Substance: FUROSEMIDE
     Dosage: 20,MG,ONCE
     Route: 042
     Dates: start: 20230402, end: 20230402
  66. FUROSEMIDE [Concomitant]
     Active Substance: FUROSEMIDE
     Dosage: 20,MG,ONCE
     Route: 042
     Dates: start: 20230403, end: 20230403
  67. FUROSEMIDE [Concomitant]
     Active Substance: FUROSEMIDE
     Dosage: 20,MG,ONCE
     Route: 042
     Dates: start: 20230404, end: 20230404
  68. ARIXTRA [Concomitant]
     Active Substance: FONDAPARINUX SODIUM
     Dosage: 2.5,MG,DAILY
     Route: 058
     Dates: start: 20230318, end: 20230320
  69. ARIXTRA [Concomitant]
     Active Substance: FONDAPARINUX SODIUM
     Dosage: 2.5,MG,DAILY
     Route: 058
     Dates: start: 20230402, end: 20230411
  70. LACTULOSE [Concomitant]
     Active Substance: LACTULOSE
     Dosage: 20,G,ONCE
     Route: 048
     Dates: start: 20230320, end: 20230320
  71. LACTULOSE [Concomitant]
     Active Substance: LACTULOSE
     Dosage: 20,G,ONCE
     Route: 048
     Dates: start: 20230406, end: 20230406
  72. LACTULOSE [Concomitant]
     Active Substance: LACTULOSE
     Dosage: 20,G,DAILY
     Route: 048
     Dates: start: 20230408, end: 20230411
  73. EFFERVESCENT POTASSIUM CHLOR [Concomitant]
     Dosage: 20,OTHER,DAILY
     Route: 048
     Dates: start: 20230323, end: 20230402
  74. EFFERVESCENT POTASSIUM CHLOR [Concomitant]
     Dosage: 20,OTHER,TWICE DAILY
     Route: 048
     Dates: start: 20230403, end: 20230413
  75. EFFERVESCENT POTASSIUM CHLOR [Concomitant]
     Dosage: 20,OTHER,TWICE DAILY
     Route: 048
     Dates: start: 20230414
  76. VITAMINS [Concomitant]
     Active Substance: VITAMINS
     Dosage: 1,OTHER,DAILY
     Route: 048
     Dates: start: 20230323, end: 20230402
  77. PENTAMIDINE [Concomitant]
     Active Substance: PENTAMIDINE
     Dosage: 300,MG,ONCE
     Route: 055
     Dates: start: 20230329, end: 20230329

REACTIONS (2)
  - Parainfluenzae virus infection [Recovered/Resolved]
  - Pneumocystis jirovecii pneumonia [Recovered/Resolved]

NARRATIVE: CASE EVENT DATE: 20230402
